FAERS Safety Report 6398325-6 (Version None)
Quarter: 2009Q4

REPORT INFORMATION
  Report Type: 
  Country: None (occurrence: None)
  Receive Date: 20091013
  Receipt Date: 20091007
  Transmission Date: 20100525
  Serious: Yes (Life-Threatening)
  Sender: FDA-Public Use
  Company Number: GB-WYE-G04570809

PATIENT
  Age: 35 Year
  Sex: Male
  Weight: 72 kg

DRUGS (4)
  1. EFFEXOR [Suspect]
     Indication: DEPRESSION
     Dosage: 75MG, FREQUENCY UNKNOWN
     Route: 048
     Dates: start: 20080827
  2. SALMETEROL [Concomitant]
     Indication: ASTHMA
     Dosage: DOSE UNKNOWN, TAKEN AS NECESSARY
     Route: 055
  3. SEREVENT [Concomitant]
     Indication: ASTHMA
     Route: 055
  4. ZOPICLONE [Suspect]
     Indication: INSOMNIA
     Dosage: 7.5MG, FREQUENCY UNKNOWN
     Route: 048
     Dates: start: 20081007, end: 20090903

REACTIONS (4)
  - ABNORMAL SLEEP-RELATED EVENT [None]
  - MEMORY IMPAIRMENT [None]
  - SOMNAMBULISM [None]
  - SOMNOLENCE [None]
